FAERS Safety Report 8449825-6 (Version None)
Quarter: 2012Q2

REPORT INFORMATION
  Report Type: 
  Country: None (occurrence: None)
  Receive Date: 20120620
  Receipt Date: 20120607
  Transmission Date: 20120825
  Serious: Yes (Hospitalization, Other)
  Sender: FDA-Public Use
  Company Number: FI-ELI_LILLY_AND_COMPANY-FI201206002724

PATIENT
  Sex: Female

DRUGS (3)
  1. OLANZAPINE [Suspect]
     Dosage: 405 MG, 2/M
     Route: 030
     Dates: start: 20120101
  2. VALPROIC ACID [Concomitant]
     Dosage: 1500 MG, QD
     Route: 065
  3. ZIPRASIDONE HYDROCHLORIDE [Concomitant]
     Dosage: 80 MG, BID
     Route: 065

REACTIONS (8)
  - SOMNOLENCE [None]
  - CONFUSIONAL STATE [None]
  - OVERDOSE [None]
  - DISORIENTATION [None]
  - MALAISE [None]
  - PAIN IN EXTREMITY [None]
  - DYSARTHRIA [None]
  - FATIGUE [None]
